FAERS Safety Report 18163051 (Version 1)
Quarter: 2020Q3

REPORT INFORMATION
  Report Type: Spontaneous
  Country: US (occurrence: US)
  Receive Date: 20200818
  Receipt Date: 20200818
  Transmission Date: 20201103
  Serious: No
  Sender: FDA-Public Use
  Company Number: US-BAYER-2020-171927

PATIENT

DRUGS (2)
  1. ALEVE [Suspect]
     Active Substance: NAPROXEN SODIUM
     Indication: NASOPHARYNGITIS
  2. ALEVE [Suspect]
     Active Substance: NAPROXEN SODIUM
     Indication: HYPERSENSITIVITY
     Dosage: UNK

REACTIONS (5)
  - Thirst [Unknown]
  - Dehydration [Unknown]
  - Dry mouth [Unknown]
  - Product use in unapproved indication [Unknown]
  - Lip dry [Unknown]
